FAERS Safety Report 4939995-6 (Version None)
Quarter: 2006Q1

REPORT INFORMATION
  Report Type: 
  Country: None (occurrence: None)
  Receive Date: 20060310
  Receipt Date: 20060227
  Transmission Date: 20060701
  Serious: Yes (Other)
  Sender: FDA-Public Use
  Company Number: US-BRISTOL-MYERS SQUIBB COMPANY-13296785

PATIENT
  Age: 93 Year
  Sex: Female

DRUGS (11)
  1. WARFARIN SODIUM [Suspect]
     Indication: ATRIAL FIBRILLATION
  2. OXANDROLONE [Suspect]
     Indication: WEIGHT GAIN POOR
  3. ALENDRONATE SODIUM [Concomitant]
  4. AMIODARONE [Concomitant]
  5. ASPIRIN [Concomitant]
  6. ATORVASTATIN CALCIUM [Concomitant]
  7. PAROXETINE HCL [Concomitant]
  8. DIVALPROEX SODIUM [Concomitant]
  9. VITAMIN CAP [Concomitant]
  10. COUGH MEDICATION [Concomitant]
  11. LAXATIVES [Concomitant]

REACTIONS (5)
  - DRUG INTERACTION [None]
  - DYSARTHRIA [None]
  - HAEMATURIA [None]
  - MOUTH HAEMORRHAGE [None]
  - TONGUE DISORDER [None]
